FAERS Safety Report 15552938 (Version 1)
Quarter: 2018Q4

REPORT INFORMATION
  Report Type: Report from Study
  Country: None (occurrence: RO)
  Receive Date: 20181025
  Receipt Date: 20181025
  Transmission Date: 20190205
  Serious: Yes (Hospitalization, Other)
  Sender: FDA-Public Use
  Company Number: RO-ABBVIE-18K-135-2379407-00

PATIENT
  Sex: Female

DRUGS (3)
  1. HUMIRA [Suspect]
     Active Substance: ADALIMUMAB
     Route: 058
     Dates: start: 2017, end: 20181008
  2. SALOFALK [Concomitant]
     Active Substance: MESALAMINE
     Indication: DIARRHOEA
     Route: 048
  3. HUMIRA [Suspect]
     Active Substance: ADALIMUMAB
     Indication: COLITIS ULCERATIVE
     Route: 058
     Dates: start: 20140716

REACTIONS (8)
  - Clostridium difficile infection [Not Recovered/Not Resolved]
  - Diarrhoea [Recovered/Resolved]
  - Haematochezia [Recovering/Resolving]
  - Pus in stool [Recovering/Resolving]
  - Haemoglobin abnormal [Recovering/Resolving]
  - Frequent bowel movements [Recovered/Resolved]
  - Muscle spasms [Recovering/Resolving]
  - Faecal calprotectin abnormal [Recovering/Resolving]

NARRATIVE: CASE EVENT DATE: 2017
